FAERS Safety Report 13417444 (Version 1)
Quarter: 2017Q2

REPORT INFORMATION
  Report Type: Spontaneous
  Country: IT (occurrence: IT)
  Receive Date: 20170407
  Receipt Date: 20170407
  Transmission Date: 20170830
  Serious: Yes (Hospitalization)
  Sender: FDA-Public Use
  Company Number: PHHY2017IT049294

PATIENT
  Age: 46 Year
  Sex: Male

DRUGS (4)
  1. SANDIMMUN NEORAL [Suspect]
     Active Substance: CYCLOSPORINE
     Indication: PSORIATIC ARTHROPATHY
     Dosage: 200 MG, QD
     Route: 048
     Dates: start: 20170307
  2. ASA [Suspect]
     Active Substance: ASPIRIN
     Indication: INFLUENZA
     Dosage: 500 MG, QD
     Route: 048
     Dates: start: 20170307, end: 20170308
  3. EUTIROX [Concomitant]
     Active Substance: LEVOTHYROXINE SODIUM
     Indication: AUTOIMMUNE THYROIDITIS
     Dosage: 100 UG, UNK
     Route: 048
     Dates: start: 20130422, end: 20170307
  4. METHOTREXATE. [Suspect]
     Active Substance: METHOTREXATE
     Indication: PSORIATIC ARTHROPATHY
     Dosage: 10 MG, QW
     Route: 048
     Dates: start: 20170307

REACTIONS (2)
  - Haematuria [Recovered/Resolved]
  - Abdominal pain [Recovered/Resolved]

NARRATIVE: CASE EVENT DATE: 20170308
